FAERS Safety Report 12605378 (Version 3)
Quarter: 2016Q3

REPORT INFORMATION
  Report Type: Spontaneous
  Country: JP (occurrence: JP)
  Receive Date: 20160729
  Receipt Date: 20160915
  Transmission Date: 20161109
  Serious: Yes (Death, Congenital Anomaly, Other)
  Sender: FDA-Public Use
  Company Number: JP-AMGEN-JPNSP2016097958

PATIENT
  Age: 8 Decade
  Sex: Male
  Weight: 53.6 kg

DRUGS (14)
  1. ELPLAT [Concomitant]
     Active Substance: OXALIPLATIN
     Indication: RECTAL CANCER
     Dosage: 120 MG, Q2WEEKS
     Route: 041
     Dates: start: 20160419, end: 20160603
  2. 5-FU [Concomitant]
     Active Substance: FLUOROURACIL
     Dosage: 3250 MG, Q2WK
     Route: 041
     Dates: start: 20160624, end: 20160624
  3. OXYCONTIN [Concomitant]
     Active Substance: OXYCODONE HYDROCHLORIDE
     Indication: CANCER PAIN
     Dosage: 10 MG, BID
     Route: 048
     Dates: start: 20160528, end: 20160714
  4. RABEPRAZOLE SODIUM. [Concomitant]
     Active Substance: RABEPRAZOLE SODIUM
     Indication: GASTRIC ULCER
     Dosage: 10 MG, BID
     Route: 048
     Dates: start: 20160517, end: 20160714
  5. VECTIBIX [Suspect]
     Active Substance: PANITUMUMAB
     Indication: RECTAL CANCER
     Dosage: 300 MG, Q2WK
     Route: 041
     Dates: start: 20160419, end: 20160624
  6. 5-FU [Concomitant]
     Active Substance: FLUOROURACIL
     Indication: RECTAL CANCER
     Dosage: 500 MG, Q2WK
     Route: 040
     Dates: start: 20160419, end: 20160603
  7. 5-FU [Concomitant]
     Active Substance: FLUOROURACIL
     Dosage: 3250 MG, Q2WEEKS
     Route: 041
     Dates: start: 20160419, end: 20160603
  8. FEBURIC [Concomitant]
     Active Substance: FEBUXOSTAT
     Indication: HYPERURICAEMIA
     Dosage: 20 MG, QD
     Route: 048
     Dates: start: 20160413, end: 20160714
  9. ELPLAT [Concomitant]
     Active Substance: OXALIPLATIN
     Dosage: 100 MG, Q2WEEKS
     Route: 041
     Dates: start: 20160624, end: 20160624
  10. 5-FU [Concomitant]
     Active Substance: FLUOROURACIL
     Dosage: 400 MG, Q2WK
     Route: 040
     Dates: start: 20160624, end: 20160624
  11. GLACTIV [Concomitant]
     Active Substance: SITAGLIPTIN
     Indication: DIABETES MELLITUS
     Dosage: 50 MG, QD
     Route: 048
     Dates: start: 20160413, end: 20160714
  12. NAIXAN [Concomitant]
     Active Substance: NAPROXEN SODIUM
     Indication: TUMOUR ASSOCIATED FEVER
     Dosage: 100 MG, BID
     Route: 048
     Dates: start: 20160420, end: 20160714
  13. LEVOFOLINATE [Concomitant]
     Active Substance: LEVOLEUCOVORIN CALCIUM
     Indication: RECTAL CANCER
     Dosage: 300 MG, Q2WEEKS
     Route: 041
     Dates: start: 20160419, end: 20160624
  14. ATORVASTATIN                       /01326102/ [Concomitant]
     Active Substance: ATORVASTATIN
     Indication: HYPERLIPIDAEMIA
     Dosage: 10 MG, QD
     Route: 048
     Dates: start: 20160406, end: 20160714

REACTIONS (5)
  - Malaise [Fatal]
  - Renal failure [Fatal]
  - Ascites [Fatal]
  - Decreased appetite [Fatal]
  - Nausea [Fatal]

NARRATIVE: CASE EVENT DATE: 20160615
